FAERS Safety Report 5328337-2 (Version None)
Quarter: 2007Q2

REPORT INFORMATION
  Report Type: 
  Country: None (occurrence: None)
  Receive Date: 20070518
  Receipt Date: 20070509
  Transmission Date: 20071010
  Serious: Yes (Other)
  Sender: FDA-Public Use
  Company Number: US-JNJFOC-20070502491

PATIENT
  Sex: Female
  Weight: 104.33 kg

DRUGS (4)
  1. DURAGESIC-100 [Suspect]
     Indication: INTERVERTEBRAL DISC DISORDER
     Route: 062
  2. ACTIVELLA [Concomitant]
     Indication: HORMONE REPLACEMENT THERAPY
     Dosage: 1MG/0.5MG
     Route: 048
  3. PRILOSEC [Concomitant]
     Indication: GASTROINTESTINAL DISORDER
     Route: 048
  4. POTASSIUM ACETATE [Concomitant]
     Indication: NUTRITIONAL SUPPORT
     Route: 048

REACTIONS (2)
  - ALOPECIA [None]
  - INCORRECT DRUG ADMINISTRATION DURATION [None]
